FAERS Safety Report 9639142 (Version 1)
Quarter: 2013Q4

REPORT INFORMATION
  Report Type: Other
  Country: AU (occurrence: AU)
  Receive Date: 20131022
  Receipt Date: 20131022
  Transmission Date: 20140711
  Serious: Yes (Other)
  Sender: FDA-Public Use
  Company Number: AU-TAKEDA-2013TJP001948

PATIENT
  Sex: 0

DRUGS (3)
  1. ACTOS [Suspect]
     Dosage: 30 MG, UNK
     Dates: start: 20070715, end: 20130521
  2. CRESTOR [Concomitant]
  3. PANADOL OSTEO [Concomitant]

REACTIONS (1)
  - Breast cancer [Not Recovered/Not Resolved]
